FAERS Safety Report 6148793-X (Version None)
Quarter: 2009Q2

REPORT INFORMATION
  Report Type: 
  Country: None (occurrence: None)
  Receive Date: 20090408
  Receipt Date: 20090402
  Transmission Date: 20091009
  Serious: Yes (Other)
  Sender: FDA-Public Use
  Company Number: US-ABBOTT-09P-163-0560579-00

PATIENT
  Sex: Female
  Weight: 108.96 kg

DRUGS (5)
  1. HUMIRA [Suspect]
     Indication: PSORIATIC ARTHROPATHY
     Route: 058
     Dates: start: 20080401, end: 20080601
  2. HUMIRA [Suspect]
     Dates: start: 20080801, end: 20081116
  3. METHOTREXATE [Concomitant]
     Indication: PSORIATIC ARTHROPATHY
  4. LYRICA [Concomitant]
     Indication: FIBROMYALGIA
  5. INDOMETHACIN [Concomitant]
     Indication: PAIN MANAGEMENT

REACTIONS (4)
  - IMPAIRED HEALING [None]
  - INGUINAL HERNIA [None]
  - PAIN [None]
  - PNEUMONIA [None]
